FAERS Safety Report 19074506 (Version 1)
Quarter: 2021Q1

REPORT INFORMATION
  Report Type: Spontaneous
  Country: US (occurrence: US)
  Receive Date: 20210330
  Receipt Date: 20210330
  Transmission Date: 20210420
  Serious: Yes (Other)
  Sender: FDA-Public Use
  Company Number: US-TAKEDA-2021TUS019879

PATIENT
  Age: 71 Year
  Sex: Female
  Weight: 83.9 kg

DRUGS (15)
  1. ACETAMINOPHEN. [Concomitant]
     Active Substance: ACETAMINOPHEN
     Route: 065
  2. DIPHENHYDRAMINE. [Concomitant]
     Active Substance: DIPHENHYDRAMINE
     Route: 065
  3. LEXAPRO [Concomitant]
     Active Substance: ESCITALOPRAM OXALATE
     Route: 065
  4. PREDNISONE. [Concomitant]
     Active Substance: PREDNISONE
     Route: 065
  5. VITAMIN B12 [Concomitant]
     Active Substance: CYANOCOBALAMIN
     Route: 065
  6. LIDOCAINE. [Concomitant]
     Active Substance: LIDOCAINE
     Route: 065
  7. NORMAL SALINE [Concomitant]
     Active Substance: SODIUM CHLORIDE
     Route: 065
  8. BACTRIM DS [Concomitant]
     Active Substance: SULFAMETHOXAZOLE\TRIMETHOPRIM
     Route: 065
  9. EPINEPHRINE. [Concomitant]
     Active Substance: EPINEPHRINE
     Route: 065
  10. XARELTO [Concomitant]
     Active Substance: RIVAROXABAN
     Route: 065
  11. ENBREL [Concomitant]
     Active Substance: ETANERCEPT
     Route: 065
  12. ALLOPURINOL. [Concomitant]
     Active Substance: ALLOPURINOL
     Route: 065
  13. PHENOBARBITAL. [Concomitant]
     Active Substance: PHENOBARBITAL
     Route: 065
  14. VITAMIN D3 [Concomitant]
     Active Substance: CHOLECALCIFEROL
     Route: 065
  15. HYQVIA [Suspect]
     Active Substance: HUMAN IMMUNOGLOBULIN G\HYALURONIDASE RECOMBINANT HUMAN
     Indication: IMMUNODEFICIENCY COMMON VARIABLE
     Dosage: 30 GRAM, Q4WEEKS
     Route: 058
     Dates: start: 20200820

REACTIONS (1)
  - Foot fracture [Unknown]

NARRATIVE: CASE EVENT DATE: 20210323
